FAERS Safety Report 5957354-4 (Version None)
Quarter: 2008Q4

REPORT INFORMATION
  Report Type: 
  Country: None (occurrence: None)
  Receive Date: 20081114
  Receipt Date: 20081103
  Transmission Date: 20090506
  Serious: Yes (Other)
  Sender: FDA-Public Use
  Company Number: GXKR2008GB10500

PATIENT
  Sex: Female

DRUGS (5)
  1. MIRTAZAPINE [Suspect]
     Indication: DEPRESSION
     Dates: start: 20080201
  2. PROPRANOLOL [Suspect]
     Indication: ANXIETY
     Dates: start: 20080201
  3. ORLISTAT (ORLISTAT) [Suspect]
     Indication: OBESITY
     Dates: start: 20080201
  4. URSODIOL [Concomitant]
  5. PHYTONADIONE [Concomitant]

REACTIONS (2)
  - CAESAREAN SECTION [None]
  - DRUG EXPOSURE DURING PREGNANCY [None]
